FAERS Safety Report 5094218-5 (Version None)
Quarter: 2006Q3

REPORT INFORMATION
  Report Type: 
  Country: None (occurrence: None)
  Receive Date: 20060830
  Receipt Date: 20060830
  Transmission Date: 20061208
  Serious: Yes (Other)
  Sender: FDA-Public Use
  Company Number: None

PATIENT
  Weight: 81.6475 kg

DRUGS (1)
  1. INFERGEN [Suspect]
     Indication: HEPATITIS C
     Dosage: 9 MCG ONCE A WEEK SQ
     Route: 058
     Dates: start: 20060501, end: 20060830

REACTIONS (1)
  - SKIN DISCOLOURATION [None]
